FAERS Safety Report 9970203 (Version 1)
Quarter: 2014Q1

REPORT INFORMATION
  Report Type: Spontaneous
  Country: US (occurrence: US)
  Receive Date: 20140306
  Receipt Date: 20140306
  Transmission Date: 20141002
  Serious: No
  Sender: FDA-Public Use
  Company Number: US-VERTEX PHARMACEUTICALS INC-2014-000978

PATIENT
  Sex: 0

DRUGS (3)
  1. INCIVEK [Suspect]
     Indication: HEPATITIS C
     Dosage: UNK
     Dates: start: 201402, end: 20140224
  2. RIBAVIRIN [Suspect]
     Indication: HEPATITIS C
     Dosage: UNK
     Dates: start: 201403, end: 20140224
  3. PEGINTRON [Suspect]
     Indication: HEPATITIS C
     Dosage: 120 ?G, QW
     Route: 058
     Dates: start: 201402, end: 20140224

REACTIONS (1)
  - White blood cell count decreased [Not Recovered/Not Resolved]
